FAERS Safety Report 19429979 (Version 1)
Quarter: 2021Q2

REPORT INFORMATION
  Report Type: Spontaneous
  Country: FR (occurrence: FR)
  Receive Date: 20210617
  Receipt Date: 20210617
  Transmission Date: 20210717
  Serious: Yes (Other)
  Sender: FDA-Public Use
  Company Number: FR-MYLANLABS-2021M1035268

PATIENT
  Age: 51 Year
  Sex: Female

DRUGS (4)
  1. CLOZAPINE MYLAN [Suspect]
     Active Substance: CLOZAPINE
     Indication: SCHIZOPHRENIA
     Dosage: 2 DOSAGE FORM (2 TABLETS OF 25MG)
  2. ABILIFY [Concomitant]
     Active Substance: ARIPIPRAZOLE
     Dosage: 15 MILLIGRAM, BID (8.00AM)
  3. CLOZAPINE MYLAN [Suspect]
     Active Substance: CLOZAPINE
     Dosage: 100 MILLIGRAM, QD (8.00AM)
  4. CLOZAPINE MYLAN [Suspect]
     Active Substance: CLOZAPINE
     Indication: SCHIZOPHRENIA
     Dosage: 100 MILLIGRAM, QD (08.00AM)

REACTIONS (6)
  - Amnesia [Unknown]
  - Increased appetite [Unknown]
  - Bradycardia [Unknown]
  - Libido increased [Unknown]
  - Disturbance in attention [Unknown]
  - Psychomotor skills impaired [Unknown]
